FAERS Safety Report 4616843-5 (Version None)
Quarter: 2005Q1

REPORT INFORMATION
  Report Type: 
  Country: None (occurrence: None)
  Receive Date: 20050321
  Receipt Date: 20040117
  Transmission Date: 20050727
  Serious: Yes (Hospitalization)
  Sender: FDA-Public Use
  Company Number: 7205

PATIENT
  Age: 79 Year
  Sex: Female

DRUGS (5)
  1. GLYCERYL TRINITRATE [Suspect]
     Indication: CHEST PAIN
     Dosage: 800 MICROGRAM ONCE
     Route: 060
     Dates: start: 20031012, end: 20031012
  2. NIFEDIPINE [Concomitant]
  3. SIMVASTATIN [Concomitant]
  4. ATENOLOL [Concomitant]
  5. ASPIRIN [Concomitant]

REACTIONS (2)
  - DIZZINESS [None]
  - FALL [None]
